FAERS Safety Report 11108751 (Version 1)
Quarter: 2015Q2

REPORT INFORMATION
  Report Type: Spontaneous
  Country: GB (occurrence: GB)
  Receive Date: 20150513
  Receipt Date: 20150513
  Transmission Date: 20150821
  Serious: Yes (Hospitalization)
  Sender: FDA-Public Use
  Company Number: GB-ACCORD-030457

PATIENT
  Age: 43 Year
  Sex: Female

DRUGS (1)
  1. TRAMADOL ACCORD [Suspect]
     Active Substance: TRAMADOL
     Indication: PAIN IN EXTREMITY

REACTIONS (6)
  - Suicide attempt [Unknown]
  - Overdose [Unknown]
  - Loss of consciousness [Recovered/Resolved]
  - Somnolence [Recovered/Resolved]
  - Seizure [Recovered/Resolved]
  - Confusional state [Recovered/Resolved]

NARRATIVE: CASE EVENT DATE: 20150211
